FAERS Safety Report 7270269-7 (Version None)
Quarter: 2011Q1

REPORT INFORMATION
  Report Type: 
  Country: None (occurrence: None)
  Receive Date: 20110125
  Receipt Date: 20110125
  Transmission Date: 20110831
  Serious: Yes (Other)
  Sender: FDA-Public Use
  Company Number: None

PATIENT
  Age: 5 Year
  Sex: Female
  Weight: 17.6903 kg

DRUGS (1)
  1. SINGULAIR [Suspect]
     Indication: MULTIPLE ALLERGIES
     Dosage: 4 MG 1XDAY
     Dates: start: 20101207, end: 20110114

REACTIONS (10)
  - COUGH [None]
  - EYE MOVEMENT DISORDER [None]
  - PYREXIA [None]
  - VOMITING [None]
  - DECREASED APPETITE [None]
  - FATIGUE [None]
  - TIC [None]
  - PHARYNGITIS STREPTOCOCCAL [None]
  - CONJUNCTIVITIS [None]
  - MALAISE [None]
